FAERS Safety Report 8923201 (Version 1)
Quarter: 2012Q4

REPORT INFORMATION
  Report Type: Spontaneous
  Country: JP (occurrence: None)
  Receive Date: 20121109
  Receipt Date: 20121109
  Transmission Date: 20130627
  Serious: No
  Sender: FDA-Public Use
  Company Number: 2011S1000788

PATIENT
  Age: 44 Year
  Sex: Male

DRUGS (7)
  1. CUBICIN [Suspect]
     Indication: POSTOPERATIVE WOUND INFECTION
     Route: 042
     Dates: start: 20111004, end: 20111023
  2. GASTER [Concomitant]
  3. BROTIZOLAM [Concomitant]
  4. LOXOPROFEN [Concomitant]
  5. REBAMIPIDE [Concomitant]
  6. RIFAMPICIN [Concomitant]
  7. CEPTAZIDIME [Concomitant]

REACTIONS (2)
  - Blood creatine phosphokinase increased [None]
  - Off label use [None]
